FAERS Safety Report 7381054-X (Version None)
Quarter: 2011Q1

REPORT INFORMATION
  Report Type: 
  Country: None (occurrence: None)
  Receive Date: 20110329
  Receipt Date: 20110323
  Transmission Date: 20110831
  Serious: No
  Sender: FDA-Public Use
  Company Number: US-TEVA-273030USA

PATIENT
  Age: 35 Year
  Sex: Female
  Weight: 60.836 kg

DRUGS (2)
  1. PLAN B ONE-STEP [Suspect]
     Indication: POST COITAL CONTRACEPTION
     Route: 048
     Dates: start: 20110313, end: 20110313
  2. WELLBUTRIN [Concomitant]
     Indication: DEPRESSION

REACTIONS (1)
  - NAUSEA [None]
